FAERS Safety Report 4457796-2 (Version None)
Quarter: 2004Q3

REPORT INFORMATION
  Report Type: 
  Country: None (occurrence: None)
  Receive Date: 20040917
  Receipt Date: 20030724
  Transmission Date: 20050211
  Serious: No
  Sender: FDA-Public Use
  Company Number: NSADSS2002027203

PATIENT
  Age: 10 Year
  Sex: Male
  Weight: 62.6 kg

DRUGS (2)
  1. TOPAMAX [Suspect]
     Indication: EPILEPSY
     Dosage: 50 MG, 2 IN 1 DAY, ORAL
     Route: 048
     Dates: start: 20020626, end: 20020910
  2. HERBAL MEDICATIONS (HERBAL PREPARATION) [Concomitant]

REACTIONS (4)
  - ANHIDROSIS [None]
  - FEELING ABNORMAL [None]
  - FEELING HOT [None]
  - MALAISE [None]
